FAERS Safety Report 17339562 (Version 2)
Quarter: 2020Q2

REPORT INFORMATION
  Report Type: Spontaneous
  Country: JP (occurrence: JP)
  Receive Date: 20200129
  Receipt Date: 20200610
  Transmission Date: 20200713
  Serious: Yes (Hospitalization)
  Sender: FDA-Public Use
  Company Number: JP-CELGENEUS-JPN-20200109462

PATIENT
  Age: 69 Year
  Sex: Female
  Weight: 36.5 kg

DRUGS (2)
  1. GEMCITABINE. [Suspect]
     Active Substance: GEMCITABINE
     Indication: PANCREATIC CARCINOMA METASTATIC
     Dosage: 1200 MILLIGRAM
     Route: 041
     Dates: start: 20160202, end: 20160304
  2. ABRAXANE [Suspect]
     Active Substance: PACLITAXEL
     Indication: PANCREATIC CARCINOMA METASTATIC
     Dosage: 150 MILLIGRAM
     Route: 041
     Dates: start: 20160202, end: 20160304

REACTIONS (2)
  - Interstitial lung disease [Recovering/Resolving]
  - Drug eruption [Recovering/Resolving]

NARRATIVE: CASE EVENT DATE: 20160209
